FAERS Safety Report 7347964-4 (Version None)
Quarter: 2011Q1

REPORT INFORMATION
  Report Type: 
  Country: None (occurrence: None)
  Receive Date: 20110311
  Receipt Date: 20100810
  Transmission Date: 20110831
  Serious: Yes (Hospitalization, Other)
  Sender: FDA-Public Use
  Company Number: US-BAYER-201017009NA

PATIENT
  Sex: Female
  Weight: 68.027 kg

DRUGS (10)
  1. OCELLA [Suspect]
     Route: 048
     Dates: start: 20020101
  2. ADVIL [Concomitant]
  3. FLUTICASONE PROPIONATE [Concomitant]
     Dosage: UNK
     Dates: start: 20060101
  4. YAZ [Suspect]
     Indication: CONTRACEPTION
     Dosage: UNK
     Route: 048
     Dates: start: 20020101, end: 20080101
  5. LEXAPRO [Concomitant]
     Indication: ANXIETY
     Dosage: UNK
     Dates: start: 20050101, end: 20100301
  6. TOPAMAX [Concomitant]
     Dosage: UNK
     Dates: start: 20071101
  7. VENTOLIN DS [Concomitant]
     Dosage: UNK
     Dates: start: 20060101
  8. ASTELIN [DIPROPHYLLINE] [Concomitant]
     Dosage: UNK
     Dates: start: 20060101
  9. ASCORBIC ACID [Concomitant]
     Dosage: UNK
     Dates: start: 19950101, end: 19990101
  10. YASMIN [Suspect]
     Indication: CONTRACEPTION
     Dosage: UNK
     Route: 048
     Dates: start: 20020101

REACTIONS (5)
  - DYSPNOEA [None]
  - DEEP VEIN THROMBOSIS [None]
  - PULMONARY EMBOLISM [None]
  - THROMBOSIS [None]
  - OEDEMA PERIPHERAL [None]
